FAERS Safety Report 18274188 (Version 1)
Quarter: 2020Q3

REPORT INFORMATION
  Report Type: Spontaneous
  Country: JP (occurrence: JP)
  Receive Date: 20200916
  Receipt Date: 20200916
  Transmission Date: 20201103
  Serious: Yes (Other)
  Sender: FDA-Public Use
  Company Number: JP-JNJFOC-20200501025

PATIENT

DRUGS (3)
  1. ITRIZOLE [Suspect]
     Active Substance: ITRACONAZOLE
     Dosage: ITRACONAZOLE:10MG/ML
     Route: 048
  2. ITRIZOLE [Suspect]
     Active Substance: ITRACONAZOLE
     Dosage: ITRACONAZOLE:10MG/ML
     Route: 048
  3. ITRIZOLE [Suspect]
     Active Substance: ITRACONAZOLE
     Indication: CANDIDA INFECTION
     Dosage: LIQUID MEDICINE FOR INTERNAL USE.
     Route: 048

REACTIONS (4)
  - Off label use [Unknown]
  - Inappropriate schedule of product administration [Unknown]
  - Renal impairment [Unknown]
  - Opportunistic infection [Unknown]
